FAERS Safety Report 10301344 (Version 1)
Quarter: 2014Q3

REPORT INFORMATION
  Report Type: Spontaneous
  Country: US (occurrence: None)
  Receive Date: 20140709
  Receipt Date: 20140709
  Transmission Date: 20150326
  Serious: Yes (Other)
  Sender: FDA-Public Use
  Company Number: None

PATIENT
  Age: 6 Year
  Sex: Male
  Weight: 22.68 kg

DRUGS (2)
  1. PPD IN BLACK HENNA [Suspect]
     Active Substance: COSMETICS
     Indication: TATTOO
  2. P-PHENYLENEDIAMINE [Suspect]
     Active Substance: P-PHENYLENEDIAMINE

REACTIONS (3)
  - Product quality issue [None]
  - Product formulation issue [None]
  - Hypersensitivity [None]

NARRATIVE: CASE EVENT DATE: 20140630
